FAERS Safety Report 6338957-4 (Version None)
Quarter: 2009Q3

REPORT INFORMATION
  Report Type: 
  Country: None (occurrence: None)
  Receive Date: 20090903
  Receipt Date: 20090827
  Transmission Date: 20100115
  Serious: Yes (Other)
  Sender: FDA-Public Use
  Company Number: CA-KINGPHARMUSA00001-K200901065

PATIENT
  Sex: Male

DRUGS (1)
  1. ALTACE [Suspect]
     Indication: HYPERTENSION
     Dosage: 10 MG, QD
     Route: 048

REACTIONS (4)
  - ADVERSE EVENT [None]
  - BLINDNESS [None]
  - COUGH [None]
  - TREMOR [None]
